FAERS Safety Report 19446615 (Version 4)
Quarter: 2021Q3

REPORT INFORMATION
  Report Type: Spontaneous
  Country: US (occurrence: US)
  Receive Date: 20210622
  Receipt Date: 20210804
  Transmission Date: 20211014
  Serious: Yes (Death)
  Sender: FDA-Public Use
  Company Number: US-CELLTRION INC.-2021US008477

PATIENT

DRUGS (4)
  1. POLIVY [Concomitant]
     Active Substance: POLATUZUMAB VEDOTIN-PIIQ
  2. TRUXIMA [Suspect]
     Active Substance: RITUXIMAB-ABBS
     Indication: FOLLICULAR LYMPHOMA STAGE III
     Dosage: 739 MILLIGRAM
     Route: 042
     Dates: start: 20201119
  3. REVLIMID [Concomitant]
     Active Substance: LENALIDOMIDE
  4. TRUXIMA [Suspect]
     Active Substance: RITUXIMAB-ABBS
     Dosage: 739 MILLIGRAM
     Route: 042
     Dates: start: 20210105

REACTIONS (1)
  - Death [Fatal]

NARRATIVE: CASE EVENT DATE: 20210413
